FAERS Safety Report 8606799 (Version 2)
Quarter: 2013Q2

REPORT INFORMATION
  Report Type: Spontaneous
  Country: US (occurrence: US)
  Receive Date: 20120611
  Receipt Date: 20130618
  Transmission Date: 20140414
  Serious: Yes (Disabling)
  Sender: FDA-Public Use
  Company Number: US-ASTRAZENECA-2012SE35897

PATIENT
  Age: 34 Year
  Sex: Female

DRUGS (5)
  1. NEXIUM [Suspect]
     Route: 048
  2. PRILOSEC [Suspect]
     Route: 048
  3. ZANTAC [Concomitant]
     Route: 048
  4. PEPCID [Concomitant]
  5. HYDROCODONE-ACETAMINOPHEN [Concomitant]
     Dosage: 7.5-650

REACTIONS (11)
  - Carpal tunnel syndrome [Unknown]
  - Spinal disorder [Unknown]
  - Depression [Unknown]
  - Osteoporosis [Unknown]
  - Multiple fractures [Unknown]
  - Arthritis [Unknown]
  - Calcium deficiency [Unknown]
  - Diabetes mellitus [Unknown]
  - Rheumatoid arthritis [Unknown]
  - Vitamin D deficiency [Unknown]
  - Angina pectoris [Unknown]
